FAERS Safety Report 21917907 (Version 1)
Quarter: 2023Q1

REPORT INFORMATION
  Report Type: Report from Study
  Country: US (occurrence: US)
  Receive Date: 20230127
  Receipt Date: 20230127
  Transmission Date: 20230417
  Serious: Yes (Other)
  Sender: FDA-Public Use
  Company Number: US-SUN PHARMACEUTICAL INDUSTRIES LTD-2023R1-374879

PATIENT
  Sex: Male

DRUGS (3)
  1. SOTALOL [Suspect]
     Active Substance: SOTALOL
     Indication: Supraventricular tachycardia
     Dosage: 80 MILLIGRAM, BID
     Route: 048
  2. AMIODARONE [Suspect]
     Active Substance: AMIODARONE
     Indication: Arrhythmia
     Dosage: UNK
     Route: 065
  3. DEXMETHYLPHENIDATE [Suspect]
     Active Substance: DEXMETHYLPHENIDATE
     Indication: Arrhythmia
     Dosage: UNK
     Route: 065

REACTIONS (1)
  - Bradycardia [Unknown]
